FAERS Safety Report 4765874-3 (Version None)
Quarter: 2005Q3

REPORT INFORMATION
  Report Type: 
  Country: None (occurrence: None)
  Receive Date: 20050908
  Receipt Date: 20050908
  Transmission Date: 20060218
  Serious: Yes (Hospitalization)
  Sender: FDA-Public Use
  Company Number: None

PATIENT
  Sex: Female
  Weight: 101 kg

DRUGS (15)
  1. CISPLATIN (MG/M2), D1 AND D 8 OF 21-DAY CYCLE [Suspect]
     Indication: METASTASIS
     Dosage: 25 IV
     Route: 042
     Dates: start: 20050621, end: 20050824
  2. CISPLATIN (MG/M2), D1 AND D 8 OF 21-DAY CYCLE [Suspect]
     Indication: NEUROENDOCRINE TUMOUR
     Dosage: 25 IV
     Route: 042
     Dates: start: 20050621, end: 20050824
  3. IRINOTECAN (MG/M2), D1 AND D8 OF 21-DAY CYCLE [Suspect]
     Indication: METASTASIS
     Dosage: 55.2 IV
     Route: 042
     Dates: start: 20050621, end: 20050824
  4. IRINOTECAN (MG/M2), D1 AND D8 OF 21-DAY CYCLE [Suspect]
     Indication: NEUROENDOCRINE TUMOUR
     Dosage: 55.2 IV
     Route: 042
     Dates: start: 20050621, end: 20050824
  5. CAPECITABINE (MG/M2) D1-14 OF 21-DAY CYCLE [Suspect]
     Indication: METASTASIS
     Dosage: 1400 ORAL
     Route: 048
     Dates: start: 20050621, end: 20050830
  6. CAPECITABINE (MG/M2) D1-14 OF 21-DAY CYCLE [Suspect]
     Indication: NEUROENDOCRINE TUMOUR
     Dosage: 1400 ORAL
     Route: 048
     Dates: start: 20050621, end: 20050830
  7. ZOFRAN [Concomitant]
  8. ZEBETA [Concomitant]
  9. XELODA [Concomitant]
  10. PROCTOFOAM [Concomitant]
  11. LOMOTIL [Concomitant]
  12. DILTIA XL [Concomitant]
  13. DECADRON [Concomitant]
  14. COMPAZINE [Concomitant]
  15. ATIVAN [Concomitant]

REACTIONS (11)
  - ANAL FISSURE [None]
  - BACK PAIN [None]
  - CONDITION AGGRAVATED [None]
  - CONSTIPATION [None]
  - DIARRHOEA [None]
  - HAEMORRHOIDS [None]
  - HYPOAESTHESIA [None]
  - NAUSEA [None]
  - PAIN [None]
  - RECTAL DISCHARGE [None]
  - VOMITING [None]
